FAERS Safety Report 17369494 (Version 1)
Quarter: 2020Q1

REPORT INFORMATION
  Report Type: Report from Study
  Country: None (occurrence: US)
  Receive Date: 20200204
  Receipt Date: 20200204
  Transmission Date: 20200409
  Serious: Yes (Hospitalization, Other)
  Sender: FDA-Public Use
  Company Number: US-ABBVIE-19K-163-2744872-00

PATIENT
  Age: 66 Year
  Sex: Female
  Weight: 81.72 kg

DRUGS (6)
  1. VANCOMYCIN [Concomitant]
     Active Substance: VANCOMYCIN
     Indication: PRODUCT USED FOR UNKNOWN INDICATION
  2. PENICILLIN [Concomitant]
     Active Substance: PENICILLIN
     Indication: PRODUCT USED FOR UNKNOWN INDICATION
  3. HUMIRA [Suspect]
     Active Substance: ADALIMUMAB
     Indication: CROHN^S DISEASE
     Dosage: CITRATE FREE
     Route: 058
     Dates: start: 20150214, end: 20170215
  4. HUMIRA [Suspect]
     Active Substance: ADALIMUMAB
     Dosage: CITRATE FREE
     Route: 058
     Dates: start: 20170329
  5. AZITHROMYCIN ANHYDROUS. [Concomitant]
     Active Substance: AZITHROMYCIN ANHYDROUS
     Indication: PRODUCT USED FOR UNKNOWN INDICATION
  6. BENZO [Concomitant]
     Active Substance: BENZYL BENZOATE
     Indication: PRODUCT USED FOR UNKNOWN INDICATION

REACTIONS (14)
  - Dyspnoea [Recovered/Resolved]
  - Muscle disorder [Recovered/Resolved]
  - Post procedural complication [Unknown]
  - Dental implantation [Unknown]
  - Device issue [Unknown]
  - Intra-abdominal fluid collection [Recovered/Resolved]
  - Impaired healing [Unknown]
  - Bronchitis [Unknown]
  - Sleep apnoea syndrome [Recovered/Resolved]
  - Hernia [Recovered/Resolved]
  - Abdominal operation [Unknown]
  - Atrial fibrillation [Recovered/Resolved]
  - Weight decreased [Unknown]
  - Fear [Unknown]

NARRATIVE: CASE EVENT DATE: 2017
